FAERS Safety Report 21246011 (Version 1)
Quarter: 2022Q3

REPORT INFORMATION
  Report Type: Spontaneous
  Country: CA (occurrence: CA)
  Receive Date: 20220824
  Receipt Date: 20220824
  Transmission Date: 20221027
  Serious: Yes (Hospitalization, Other)
  Sender: FDA-Public Use
  Company Number: CA-NOVARTISPH-NVSC2022CA185937

PATIENT
  Sex: Male

DRUGS (2)
  1. TRAMETINIB [Suspect]
     Active Substance: TRAMETINIB
     Indication: Astrocytoma
     Dosage: UNK
     Route: 065
     Dates: start: 202106, end: 202111
  2. BINIMETINIB [Concomitant]
     Active Substance: BINIMETINIB
     Indication: Product used for unknown indication
     Dosage: UNK
     Route: 065
     Dates: start: 202202

REACTIONS (4)
  - Astrocytoma [Unknown]
  - Malignant neoplasm progression [Unknown]
  - Oedema peripheral [Unknown]
  - Product use in unapproved indication [Unknown]
